FAERS Safety Report 6082967-1 (Version None)
Quarter: 2009Q1

REPORT INFORMATION
  Report Type: 
  Country: None (occurrence: None)
  Receive Date: 20090218
  Receipt Date: 20090209
  Transmission Date: 20090719
  Serious: Yes (Death, Other)
  Sender: FDA-Public Use
  Company Number: GR-ROXANE LABORATORIES, INC.-2009-RO-00135RO

PATIENT
  Age: 64 Year
  Sex: Male

DRUGS (7)
  1. CYCLOPHOSPHAMIDE [Suspect]
     Indication: WEGENER'S GRANULOMATOSIS
  2. CYCLOPHOSPHAMIDE [Suspect]
     Dosage: 100MG
     Route: 048
  3. CYCLOPHOSPHAMIDE [Suspect]
  4. MYCOPHENOLATE MOFETIL [Suspect]
     Indication: WEGENER'S GRANULOMATOSIS
  5. AZATHIOPRINE [Suspect]
     Indication: WEGENER'S GRANULOMATOSIS
     Dosage: 100MG
  6. GANCICLOVIR [Suspect]
     Indication: CYTOMEGALOVIRUS INFECTION
     Dates: start: 20050801
  7. CORTICOSTEROIDS [Suspect]
     Indication: WEGENER'S GRANULOMATOSIS

REACTIONS (6)
  - ACUTE MYELOMONOCYTIC LEUKAEMIA [None]
  - CYTOMEGALOVIRUS INFECTION [None]
  - DISEASE RECURRENCE [None]
  - MYELODYSPLASTIC SYNDROME [None]
  - REFRACTORY ANAEMIA WITH AN EXCESS OF BLASTS [None]
  - SEPSIS [None]
